FAERS Safety Report 14269929 (Version 1)
Quarter: 2017Q4

REPORT INFORMATION
  Report Type: Spontaneous
  Country: GB (occurrence: GB)
  Receive Date: 20171211
  Receipt Date: 20171211
  Transmission Date: 20180321
  Serious: Yes (Life-Threatening, Hospitalization, Other)
  Sender: FDA-Public Use
  Company Number: GB-OTSUKA-DJ20090715

PATIENT

DRUGS (7)
  1. RISPERIDONE. [Suspect]
     Active Substance: RISPERIDONE
     Indication: CONFUSIONAL STATE
     Dosage: 2.5 MG, QD
     Route: 048
     Dates: start: 20090108, end: 20090208
  2. ABILIFY [Suspect]
     Active Substance: ARIPIPRAZOLE
     Indication: CONFUSIONAL STATE
     Route: 048
     Dates: start: 20090108
  3. LANSOPRAZOLE. [Concomitant]
     Active Substance: LANSOPRAZOLE
     Route: 065
  4. RISPERIDONE. [Suspect]
     Active Substance: RISPERIDONE
     Indication: CONFUSIONAL STATE
     Route: 048
     Dates: start: 20090108, end: 20090208
  5. DOMPERIDONE [Concomitant]
     Active Substance: DOMPERIDONE
     Route: 065
  6. GAVISCON [Concomitant]
     Active Substance: ALUMINUM HYDROXIDE\MAGNESIUM CARBONATE
     Route: 065
  7. RISPERIDONE. [Suspect]
     Active Substance: RISPERIDONE
     Indication: AGITATION

REACTIONS (1)
  - Hypoglycaemia [Recovering/Resolving]

NARRATIVE: CASE EVENT DATE: 20090208
